FAERS Safety Report 26126467 (Version 1)
Quarter: 2025Q4

REPORT INFORMATION
  Report Type: Spontaneous
  Country: JP (occurrence: JP)
  Receive Date: 20251205
  Receipt Date: 20251205
  Transmission Date: 20260117
  Serious: Yes (Life-Threatening, Other)
  Sender: BRISTOL-MYERS SQUIBB COMPANY
  Company Number: JP-BRISTOL-MYERS SQUIBB COMPANY-2025-161236

PATIENT
  Age: 13 Year
  Sex: Male
  Weight: 45.1 kg

DRUGS (50)
  1. SPRYCEL [Suspect]
     Active Substance: DASATINIB
     Indication: Philadelphia positive acute lymphocytic leukaemia
  2. SPRYCEL [Suspect]
     Active Substance: DASATINIB
  3. SPRYCEL [Suspect]
     Active Substance: DASATINIB
  4. SPRYCEL [Suspect]
     Active Substance: DASATINIB
  5. SPRYCEL [Suspect]
     Active Substance: DASATINIB
  6. SPRYCEL [Suspect]
     Active Substance: DASATINIB
  7. SPRYCEL [Suspect]
     Active Substance: DASATINIB
  8. SPRYCEL [Suspect]
     Active Substance: DASATINIB
  9. SPRYCEL [Suspect]
     Active Substance: DASATINIB
  10. SPRYCEL [Suspect]
     Active Substance: DASATINIB
  11. SPRYCEL [Suspect]
     Active Substance: DASATINIB
  12. SPRYCEL [Suspect]
     Active Substance: DASATINIB
  13. SPRYCEL [Suspect]
     Active Substance: DASATINIB
  14. SPRYCEL [Suspect]
     Active Substance: DASATINIB
  15. SPRYCEL [Suspect]
     Active Substance: DASATINIB
  16. SPRYCEL [Suspect]
     Active Substance: DASATINIB
  17. DASATINIB [Suspect]
     Active Substance: DASATINIB
     Indication: Philadelphia positive acute lymphocytic leukaemia
     Route: 048
     Dates: start: 20230921
  18. DASATINIB [Suspect]
     Active Substance: DASATINIB
     Route: 048
     Dates: start: 20231031
  19. DASATINIB [Suspect]
     Active Substance: DASATINIB
     Route: 048
     Dates: start: 20240702
  20. DASATINIB [Suspect]
     Active Substance: DASATINIB
     Route: 048
     Dates: start: 20250110, end: 20250801
  21. DASATINIB [Suspect]
     Active Substance: DASATINIB
     Route: 048
     Dates: start: 20231121
  22. DASATINIB [Suspect]
     Active Substance: DASATINIB
     Route: 048
     Dates: start: 20240206
  23. DASATINIB [Suspect]
     Active Substance: DASATINIB
     Route: 048
     Dates: start: 20240305
  24. DASATINIB [Suspect]
     Active Substance: DASATINIB
     Route: 048
     Dates: start: 20240411
  25. DASATINIB [Suspect]
     Active Substance: DASATINIB
     Route: 048
     Dates: start: 20240509
  26. DASATINIB [Suspect]
     Active Substance: DASATINIB
     Route: 048
     Dates: start: 20240530
  27. DASATINIB [Suspect]
     Active Substance: DASATINIB
     Route: 048
     Dates: end: 20240814
  28. DASATINIB [Suspect]
     Active Substance: DASATINIB
     Route: 048
     Dates: start: 20240827
  29. DASATINIB [Suspect]
     Active Substance: DASATINIB
     Route: 048
     Dates: start: 20240919
  30. DASATINIB [Suspect]
     Active Substance: DASATINIB
     Route: 048
     Dates: end: 20240924
  31. DASATINIB [Suspect]
     Active Substance: DASATINIB
     Route: 048
     Dates: start: 20241022
  32. DASATINIB [Suspect]
     Active Substance: DASATINIB
     Route: 048
     Dates: start: 20241128
  33. DASATINIB [Suspect]
     Active Substance: DASATINIB
     Route: 048
     Dates: end: 20241129
  34. DASATINIB [Suspect]
     Active Substance: DASATINIB
     Route: 048
     Dates: start: 20241204
  35. DASATINIB [Suspect]
     Active Substance: DASATINIB
     Route: 048
     Dates: end: 20241224
  36. PREDNISOLONE [Concomitant]
     Active Substance: PREDNISOLONE
     Indication: Philadelphia positive acute lymphocytic leukaemia
  37. BLINATUMOMAB [Concomitant]
     Active Substance: BLINATUMOMAB
     Indication: Philadelphia positive acute lymphocytic leukaemia
  38. BLINATUMOMAB [Concomitant]
     Active Substance: BLINATUMOMAB
  39. BLINATUMOMAB [Concomitant]
     Active Substance: BLINATUMOMAB
  40. MERCAPTOPURINE [Concomitant]
     Active Substance: MERCAPTOPURINE
     Indication: Philadelphia positive acute lymphocytic leukaemia
     Dates: start: 20250124, end: 20250711
  41. MERCAPTOPURINE [Concomitant]
     Active Substance: MERCAPTOPURINE
  42. MERCAPTOPURINE [Concomitant]
     Active Substance: MERCAPTOPURINE
  43. METHOTREXATE [Concomitant]
     Active Substance: METHOTREXATE
     Indication: Philadelphia positive acute lymphocytic leukaemia
     Dates: start: 20250124, end: 20250711
  44. METHOTREXATE [Concomitant]
     Active Substance: METHOTREXATE
  45. METHOTREXATE [Concomitant]
     Active Substance: METHOTREXATE
  46. FLUCONAZOLE [Concomitant]
     Active Substance: FLUCONAZOLE
     Indication: Philadelphia positive acute lymphocytic leukaemia
  47. SULFAMETHOXAZOLE\TRIMETHOPRIM [Concomitant]
     Active Substance: SULFAMETHOXAZOLE\TRIMETHOPRIM
     Indication: Product used for unknown indication
  48. SULFAMETHOXAZOLE\TRIMETHOPRIM [Concomitant]
     Active Substance: SULFAMETHOXAZOLE\TRIMETHOPRIM
     Dates: start: 20130920, end: 20240127
  49. CILOSTAZOL [Concomitant]
     Active Substance: CILOSTAZOL
     Indication: Product used for unknown indication
  50. CARBOCYSTEINE [Concomitant]
     Active Substance: CARBOCYSTEINE
     Indication: Product used for unknown indication

REACTIONS (10)
  - Pulmonary arterial hypertension [Not Recovered/Not Resolved]
  - Pleural effusion [Recovered/Resolved]
  - Altered state of consciousness [Recovering/Resolving]
  - Cytopenia [Unknown]
  - COVID-19 [Unknown]
  - Nasopharyngitis [Recovering/Resolving]
  - Decreased appetite [Recovering/Resolving]
  - Headache [Recovering/Resolving]
  - Back pain [Unknown]
  - Encephalopathy [Unknown]

NARRATIVE: CASE EVENT DATE: 20240702
